FAERS Safety Report 16436928 (Version 1)
Quarter: 2019Q2

REPORT INFORMATION
  Report Type: Spontaneous
  Country: CA (occurrence: CA)
  Receive Date: 20190614
  Receipt Date: 20190614
  Transmission Date: 20190711
  Serious: Yes (Hospitalization)
  Sender: FDA-Public Use
  Company Number: CA-ACTELION-A-US2019-191610

PATIENT
  Sex: Female
  Weight: 72.56 kg

DRUGS (5)
  1. TRACLEER [Suspect]
     Active Substance: BOSENTAN
     Indication: PULMONARY ARTERIAL HYPERTENSION
     Dosage: 62.5 MG, BID
     Route: 048
     Dates: start: 20190522
  2. XARELTO [Concomitant]
     Active Substance: RIVAROXABAN
  3. ASA [Concomitant]
     Active Substance: ASPIRIN
  4. CARIPUL [Suspect]
     Active Substance: EPOPROSTENOL
     Indication: PULMONARY ARTERIAL HYPERTENSION
     Dosage: 15000 NG/KG, PER MIN
     Route: 042
     Dates: start: 20190522
  5. FUROSEMIDE. [Concomitant]
     Active Substance: FUROSEMIDE

REACTIONS (1)
  - Hospitalisation [Unknown]
